FAERS Safety Report 10188663 (Version 1)
Quarter: 2014Q2

REPORT INFORMATION
  Report Type: Spontaneous
  Country: US (occurrence: US)
  Receive Date: 20140522
  Receipt Date: 20140522
  Transmission Date: 20141212
  Serious: No
  Sender: FDA-Public Use
  Company Number: US-SA-2014SA035254

PATIENT
  Age: 60 Year
  Sex: Male

DRUGS (2)
  1. SOLOSTAR [Suspect]
     Indication: DEVICE THERAPY
  2. LANTUS SOLOSTAR [Suspect]
     Indication: TYPE 2 DIABETES MELLITUS
     Dosage: DOSE: UP TO 20 UNITS
     Route: 065

REACTIONS (2)
  - Injection site haemorrhage [Not Recovered/Not Resolved]
  - Drug dose omission [Unknown]
